FAERS Safety Report 4357509-9 (Version None)
Quarter: 2004Q2

REPORT INFORMATION
  Report Type: 
  Country: None (occurrence: None)
  Receive Date: 20040510
  Receipt Date: 20040429
  Transmission Date: 20050107
  Serious: Yes (Other)
  Sender: FDA-Public Use
  Company Number: GB-JNJFOC-20040406494

PATIENT
  Age: 50 Year
  Sex: Male

DRUGS (2)
  1. RETEPLASE (RETEPLASE) LYOPHILIZED [Suspect]
     Indication: MYOCARDIAL INFARCTION
     Dosage: INTRAVENOUS
     Route: 042
     Dates: start: 20040411, end: 20040411
  2. STREPTASE [Concomitant]

REACTIONS (1)
  - CONVULSION [None]
